FAERS Safety Report 19940356 (Version 2)
Quarter: 2021Q4

REPORT INFORMATION
  Report Type: Report from Study
  Country: JP (occurrence: JP)
  Receive Date: 20211012
  Receipt Date: 20211027
  Transmission Date: 20220303
  Serious: Yes (Hospitalization, Other)
  Sender: FDA-Public Use
  Company Number: JP-AMGEN-JPNNI2020161406

PATIENT
  Age: 77 Year
  Sex: Male
  Weight: 58 kg

DRUGS (12)
  1. EVOLOCUMAB [Suspect]
     Active Substance: EVOLOCUMAB
     Indication: Hypercholesterolaemia
     Dosage: 140 MILLIGRAM, Q2WK
     Route: 058
     Dates: start: 20191006
  2. LIVALO [Concomitant]
     Active Substance: PITAVASTATIN CALCIUM
     Indication: Hypercholesterolaemia
     Dosage: 2 MILLIGRAM, QD
  3. ZETIA [Concomitant]
     Active Substance: EZETIMIBE
     Indication: Hypercholesterolaemia
     Dosage: 10 MILLIGRAM, QD
  4. OMEGA-3-ACID ETHYL ESTERS [Concomitant]
     Active Substance: OMEGA-3-ACID ETHYL ESTERS
     Indication: Hypercholesterolaemia
     Dosage: 2 GRAM, QD
  5. ASPIRIN [Concomitant]
     Active Substance: ASPIRIN
     Dosage: 100 MILLIGRAM, QD
     Route: 048
  6. PRASUGREL HYDROCHLORIDE [Concomitant]
     Active Substance: PRASUGREL HYDROCHLORIDE
     Dosage: 3.75 MILLIGRAM, QD
     Route: 048
     Dates: end: 20200613
  7. PRASUGREL HYDROCHLORIDE [Concomitant]
     Active Substance: PRASUGREL HYDROCHLORIDE
     Dosage: 3.75 MILLIGRAM, QD
     Route: 048
     Dates: start: 20210129
  8. BISOPROLOL FUMARATE [Concomitant]
     Active Substance: BISOPROLOL FUMARATE
     Dosage: 2.5 MILLIGRAM, QD
     Route: 048
  9. HERBESSER [Concomitant]
     Active Substance: DILTIAZEM HYDROCHLORIDE
     Dosage: 200 MILLIGRAM, QD
     Route: 048
  10. LINAGLIPTIN [Concomitant]
     Active Substance: LINAGLIPTIN
     Dosage: 5 MILLIGRAM, QD
     Route: 048
  11. NEXIUM [Concomitant]
     Active Substance: ESOMEPRAZOLE MAGNESIUM
     Indication: Prophylaxis
     Dosage: 20 MILLIGRAM, QD
     Route: 048
  12. BRILINTA [Concomitant]
     Active Substance: TICAGRELOR
     Dosage: 120 MILLIGRAM, QD
     Route: 048
     Dates: start: 20200614, end: 20210128

REACTIONS (2)
  - Angina pectoris [Recovered/Resolved]
  - Angina pectoris [Recovering/Resolving]

NARRATIVE: CASE EVENT DATE: 20200612
